FAERS Safety Report 7927884-4 (Version None)
Quarter: 2011Q4

REPORT INFORMATION
  Report Type: 
  Country: None (occurrence: None)
  Receive Date: 20111118
  Receipt Date: 20111114
  Transmission Date: 20120403
  Serious: Yes (Other)
  Sender: FDA-Public Use
  Company Number: JP-PFIZER INC-2011260535

PATIENT
  Age: 78 Year
  Sex: Female

DRUGS (2)
  1. XALATAN [Suspect]
     Indication: OPEN ANGLE GLAUCOMA
     Dosage: IN RIGHT EYE, ONE DROP PER DOSE
     Route: 047
     Dates: start: 20070301, end: 20110319
  2. XALATAN [Suspect]
     Dosage: IN LEFT EYE, ONE DROP PER DOSE
     Route: 047
     Dates: start: 20091106, end: 20110319

REACTIONS (2)
  - CYSTOID MACULAR OEDEMA [None]
  - VISUAL ACUITY REDUCED [None]
